FAERS Safety Report 10549100 (Version 1)
Quarter: 2014Q4

REPORT INFORMATION
  Report Type: Spontaneous
  Country: US (occurrence: None)
  Receive Date: 20141016
  Receipt Date: 20141016
  Transmission Date: 20150529
  Serious: No
  Sender: FDA-Public Use
  Company Number: CABO-14004360

PATIENT
  Age: 80 Year
  Sex: Female
  Weight: 61.7 kg

DRUGS (7)
  1. SYNTHROID [Concomitant]
     Active Substance: LEVOTHYROXINE SODIUM
  2. XANAX [Concomitant]
     Active Substance: ALPRAZOLAM
  3. AMLODIPINE [Concomitant]
     Active Substance: AMLODIPINE BESYLATE
  4. MINOCYCLINE [Concomitant]
     Active Substance: MINOCYCLINE\MINOCYCLINE HYDROCHLORIDE
  5. CALCITROL (CALCITRIOL) [Concomitant]
  6. COMETRIQ [Suspect]
     Active Substance: CABOZANTINIB S-MALATE
     Indication: THYROID CANCER
     Route: 048
     Dates: start: 20140524, end: 20140624
  7. ONDANSETON [Concomitant]

REACTIONS (9)
  - Weight increased [None]
  - Blood pressure systolic increased [None]
  - Local swelling [None]
  - Diarrhoea [None]
  - Skin ulcer [None]
  - Pain in extremity [None]
  - Asthenia [None]
  - Fatigue [None]
  - Excoriation [None]

NARRATIVE: CASE EVENT DATE: 20140524
